FAERS Safety Report 13894204 (Version 3)
Quarter: 2018Q1

REPORT INFORMATION
  Report Type: Spontaneous
  Country: JP (occurrence: JP)
  Receive Date: 20170822
  Receipt Date: 20180131
  Transmission Date: 20180508
  Serious: Yes (Hospitalization)
  Sender: FDA-Public Use
  Company Number: JP-009507513-1708JPN009061

PATIENT
  Age: 63 Year
  Sex: Male

DRUGS (7)
  1. TANATRIL [Concomitant]
     Active Substance: IMIDAPRIL
     Dosage: UNK
     Dates: start: 20101013
  2. LIPITOR [Concomitant]
     Active Substance: ATORVASTATIN CALCIUM
     Dosage: UNK
     Dates: start: 20101014
  3. BAYASPIRIN [Concomitant]
     Active Substance: ASPIRIN
     Dosage: UNK
     Dates: start: 20101013
  4. PLAVIX [Concomitant]
     Active Substance: CLOPIDOGREL BISULFATE
     Dosage: UNK
     Dates: start: 20101013
  5. ARTIST [Concomitant]
     Active Substance: CARVEDILOL
     Dosage: UNK
     Dates: start: 20101020
  6. GLACTIV [Suspect]
     Active Substance: SITAGLIPTIN
     Indication: TYPE 2 DIABETES MELLITUS
     Dosage: 50 MG, ONCE A DAY, STRENGTH: 12.5MG, 25MG, 50MG AND 100MG.
     Route: 048
     Dates: start: 20110122, end: 20110226
  7. TAKEPRON [Concomitant]
     Active Substance: LANSOPRAZOLE
     Dosage: UNK
     Dates: start: 20101031

REACTIONS (1)
  - Interstitial lung disease [Recovered/Resolved]

NARRATIVE: CASE EVENT DATE: 201102
